FAERS Safety Report 7542937-0 (Version None)
Quarter: 2011Q2

REPORT INFORMATION
  Report Type: 
  Country: None (occurrence: None)
  Receive Date: 20110613
  Receipt Date: 20110601
  Transmission Date: 20111010
  Serious: Yes (Other)
  Sender: FDA-Public Use
  Company Number: PHHY2011BR08234

PATIENT
  Sex: Female

DRUGS (1)
  1. TRILEPTAL [Suspect]
     Dosage: 600 MG, BID
     Route: 048

REACTIONS (4)
  - FALL [None]
  - UPPER LIMB FRACTURE [None]
  - DAYDREAMING [None]
  - TOOTH FRACTURE [None]
